FAERS Safety Report 10740432 (Version 1)
Quarter: 2015Q1

REPORT INFORMATION
  Report Type: Spontaneous
  Country: AU (occurrence: AU)
  Receive Date: 20150127
  Receipt Date: 20150127
  Transmission Date: 20150721
  Serious: Yes (Life-Threatening, Other)
  Sender: FDA-Public Use
  Company Number: AU-ASTRAZENECA-2015SE06642

PATIENT
  Age: 19587 Day
  Sex: Female

DRUGS (1)
  1. NEXIUM [Suspect]
     Active Substance: ESOMEPRAZOLE MAGNESIUM
     Route: 048

REACTIONS (6)
  - Hypocalcaemia [Unknown]
  - Electrocardiogram QT prolonged [Unknown]
  - Tetany [Unknown]
  - Hypokalaemia [Unknown]
  - Hyperparathyroidism secondary [Unknown]
  - Hypomagnesaemia [Unknown]

NARRATIVE: CASE EVENT DATE: 20140702
